FAERS Safety Report 8489110-X (Version None)
Quarter: 2012Q3

REPORT INFORMATION
  Report Type: 
  Country: None (occurrence: None)
  Receive Date: 20120705
  Receipt Date: 20120628
  Transmission Date: 20120928
  Serious: Yes (Other)
  Sender: FDA-Public Use
  Company Number: US-B.I. PHARMACEUTICALS,INC./RIDGEFIELD-2012-BP-03087BP

PATIENT
  Sex: Female
  Weight: 63.2 kg

DRUGS (11)
  1. LOSARTAN POTASSIUM [Concomitant]
  2. CALCIUM [Concomitant]
     Dosage: 500 MG
  3. ALENDRONATE SODIUM [Concomitant]
     Dosage: 35 MG
  4. LIPITOR [Concomitant]
     Dosage: 40 MG
  5. CARVEDILOL [Concomitant]
     Dosage: 25 MG
  6. LASIX [Concomitant]
     Dosage: 20 MG
  7. SILYMARIN [Concomitant]
     Dosage: 100 MG
  8. TERAZOSIN HCL [Concomitant]
     Dosage: 1 MG
  9. OMEPRAZOLE [Concomitant]
     Dosage: 20 MG
  10. PREDNISONE [Concomitant]
  11. PRADAXA [Suspect]
     Indication: ATRIAL FIBRILLATION
     Dosage: 300 MG
     Route: 048
     Dates: start: 20110601, end: 20120208

REACTIONS (3)
  - VISION BLURRED [None]
  - CONTUSION [None]
  - VITREOUS HAEMORRHAGE [None]
